FAERS Safety Report 9884876 (Version 4)
Quarter: 2015Q1

REPORT INFORMATION
  Report Type: Spontaneous
  Country: US (occurrence: US)
  Receive Date: 20140210
  Receipt Date: 20150209
  Transmission Date: 20150721
  Serious: Yes (Hospitalization, Other)
  Sender: FDA-Public Use
  Company Number: US-BAYER-2014-018994

PATIENT
  Age: 19 Year
  Sex: Female
  Weight: 99.77 kg

DRUGS (3)
  1. NEOMYCIN [Concomitant]
     Active Substance: NEOMYCIN
  2. ERYTHROMYCIN. [Concomitant]
     Active Substance: ERYTHROMYCIN
  3. MIRENA [Suspect]
     Active Substance: LEVONORGESTREL
     Indication: CONTRACEPTION
     Dosage: 20 MCG/24HR, CONT
     Route: 015
     Dates: start: 20091203, end: 20100728

REACTIONS (6)
  - Device issue [None]
  - Uterine perforation [None]
  - Emotional distress [None]
  - Injury [None]
  - Pelvic pain [None]
  - Genital haemorrhage [None]

NARRATIVE: CASE EVENT DATE: 201007
